FAERS Safety Report 8840248 (Version 1)
Quarter: 2012Q4

REPORT INFORMATION
  Report Type: 
  Country: BR (occurrence: BR)
  Receive Date: 20121015
  Receipt Date: 20121015
  Transmission Date: 20130627
  Serious: Yes (Hospitalization)
  Sender: FDA-Public Use
  Company Number: BR-GLAXOSMITHKLINE-A0997204A

PATIENT

DRUGS (1)
  1. SERETIDE [Suspect]
     Indication: BRONCHITIS
     Route: 065

REACTIONS (4)
  - Bronchitis [Recovered/Resolved]
  - Vomiting [Recovered/Resolved]
  - Varicella [Recovered/Resolved]
  - Off label use [Unknown]
